FAERS Safety Report 11749614 (Version 1)
Quarter: 2015Q4

REPORT INFORMATION
  Report Type: Spontaneous
  Country: US (occurrence: US)
  Receive Date: 20151118
  Receipt Date: 20151118
  Transmission Date: 20160304
  Serious: No
  Sender: FDA-Public Use
  Company Number: US-ASTRAZENECA-2015SF07620

PATIENT
  Sex: Male
  Weight: 95.3 kg

DRUGS (5)
  1. FARXIGA [Suspect]
     Active Substance: DAPAGLIFLOZIN PROPANEDIOL
     Indication: TYPE 2 DIABETES MELLITUS
     Route: 048
  2. TOPROL XL [Suspect]
     Active Substance: METOPROLOL SUCCINATE
     Route: 048
  3. ZETIA [Concomitant]
     Active Substance: EZETIMIBE
  4. NORVASC [Concomitant]
     Active Substance: AMLODIPINE BESYLATE
  5. TAZIA [Concomitant]

REACTIONS (1)
  - Fungal infection [Not Recovered/Not Resolved]
